FAERS Safety Report 5236789-1 (Version None)
Quarter: 2007Q1

REPORT INFORMATION
  Report Type: 
  Country: None (occurrence: None)
  Receive Date: 20070213
  Receipt Date: 20070208
  Transmission Date: 20070707
  Serious: Yes (Death, Other)
  Sender: FDA-Public Use
  Company Number: 2007UW02640

PATIENT
  Age: 56 Year
  Sex: Female

DRUGS (1)
  1. ARIMIDEX [Suspect]
     Indication: BREAST CANCER FEMALE
     Route: 048
     Dates: start: 20061201

REACTIONS (3)
  - HEPATIC ENZYME INCREASED [None]
  - HEPATIC FAILURE [None]
  - OVERDOSE [None]
